FAERS Safety Report 14271436 (Version 1)
Quarter: 2017Q4

REPORT INFORMATION
  Report Type: Spontaneous
  Country: JP (occurrence: JP)
  Receive Date: 20171211
  Receipt Date: 20171211
  Transmission Date: 20180321
  Serious: Yes (Other)
  Sender: FDA-Public Use
  Company Number: JP-BAYER-2017-233721

PATIENT
  Sex: Female

DRUGS (1)
  1. NEXAVAR [Suspect]
     Active Substance: SORAFENIB
     Indication: HEPATOCELLULAR CARCINOMA
     Dosage: 400 MG, QD
     Route: 048
     Dates: start: 20170614, end: 20171031

REACTIONS (3)
  - Electrolyte imbalance [Recovering/Resolving]
  - Hepatitis [Not Recovered/Not Resolved]
  - Hepatocellular carcinoma [None]

NARRATIVE: CASE EVENT DATE: 20171031
